FAERS Safety Report 4356345-7 (Version None)
Quarter: 2004Q2

REPORT INFORMATION
  Report Type: 
  Country: None (occurrence: None)
  Receive Date: 20040506
  Receipt Date: 20030722
  Transmission Date: 20050107
  Serious: Yes (Death)
  Sender: FDA-Public Use
  Company Number: 062-20785-03070530

PATIENT

DRUGS (1)
  1. THALIDOMIDE [Suspect]
     Indication: KAPOSI'S SARCOMA

REACTIONS (2)
  - KAPOSI'S SARCOMA [None]
  - MALIGNANT NEOPLASM PROGRESSION [None]
